FAERS Safety Report 8488033-X (Version None)
Quarter: 2012Q3

REPORT INFORMATION
  Report Type: 
  Country: None (occurrence: None)
  Receive Date: 20120705
  Receipt Date: 20120628
  Transmission Date: 20120928
  Serious: Yes (Death, Disabling)
  Sender: FDA-Public Use
  Company Number: US-CELGENEUS-163-21880-11040108

PATIENT
  Sex: Female

DRUGS (5)
  1. DEXAMETHASONE SODIUM PHOSPHATE [Concomitant]
     Dosage: 40 MILLIGRAM
     Route: 065
     Dates: start: 20090401, end: 20101101
  2. REVLIMID [Suspect]
     Dosage: 25 MILLIGRAM
     Route: 048
     Dates: start: 20110101, end: 20110301
  3. REVLIMID [Suspect]
     Indication: MULTIPLE MYELOMA
     Dosage: 25 MILLIGRAM
     Route: 048
     Dates: start: 20090401, end: 20101201
  4. VELCADE [Suspect]
     Dosage: 2.4 MILLIGRAM
     Route: 041
     Dates: start: 20091201, end: 20100901
  5. AREDIA [Concomitant]
     Indication: OSTEOPOROSIS
     Dosage: 60 MILLIGRAM
     Route: 065
     Dates: start: 20090401

REACTIONS (4)
  - DEATH [None]
  - NEUROPATHY PERIPHERAL [None]
  - FATIGUE [None]
  - COLITIS MICROSCOPIC [None]
